FAERS Safety Report 15544566 (Version 1)
Quarter: 2018Q4

REPORT INFORMATION
  Report Type: Spontaneous
  Country: US (occurrence: US)
  Receive Date: 20181024
  Receipt Date: 20181024
  Transmission Date: 20190205
  Serious: Yes (Other)
  Sender: FDA-Public Use
  Company Number: US-ACCORD-073884

PATIENT
  Age: 39 Year
  Sex: Female
  Weight: 76.66 kg

DRUGS (2)
  1. AMLODIPINE [Concomitant]
     Active Substance: AMLODIPINE BESYLATE
  2. HYDROCHLOROTHIAZIDE ACCORD [Suspect]
     Active Substance: HYDROCHLOROTHIAZIDE
     Indication: HYPERTENSION
     Dosage: STRENGTH: 12.5 MG?DOSE: 12.5 MG TWO TIMES A DAY
     Route: 048
     Dates: start: 20180615, end: 20180925

REACTIONS (4)
  - Blood potassium abnormal [Not Recovered/Not Resolved]
  - Chest pain [Recovering/Resolving]
  - Oesophagitis [Not Recovered/Not Resolved]
  - Pain in extremity [Not Recovered/Not Resolved]

NARRATIVE: CASE EVENT DATE: 20180924
